FAERS Safety Report 23598900 (Version 2)
Quarter: 2024Q2

REPORT INFORMATION
  Report Type: Spontaneous
  Country: ES (occurrence: ES)
  Receive Date: 20240306
  Receipt Date: 20240531
  Transmission Date: 20240716
  Serious: Yes (Life-Threatening, Hospitalization, Disabling, Other)
  Sender: FDA-Public Use
  Company Number: None

PATIENT
  Age: 50 Year
  Sex: Female

DRUGS (5)
  1. MIRTAZAPINE [Suspect]
     Active Substance: MIRTAZAPINE
     Indication: Affective disorder
     Dosage: (2704A)
     Route: 048
     Dates: start: 20230605
  2. LEVOTHYROXINE SODIUM [Concomitant]
     Active Substance: LEVOTHYROXINE SODIUM
     Indication: Hypothyroidism
     Route: 048
     Dates: start: 20160308
  3. OZANIMOD [Suspect]
     Active Substance: OZANIMOD
     Indication: Multiple sclerosis
     Dosage: 0.92MG, (9522A)
     Route: 048
     Dates: start: 20230807
  4. BISOPROLOL [Concomitant]
     Active Substance: BISOPROLOL\BISOPROLOL FUMARATE
     Indication: Chest pain
     Dosage: (2328A)
     Route: 048
     Dates: start: 20201031
  5. ACETAMINOPHEN [Suspect]
     Active Substance: ACETAMINOPHEN
     Indication: Pain
     Dosage: THE PATIENT WAS UNCERTAIN ABOUT THE EXACT NUMBER OF TABLETS TAKEN IN THE PREVIOUS WEEK OR SINCE S...
     Route: 048
     Dates: start: 2022

REACTIONS (7)
  - Jaundice [Recovering/Resolving]
  - Acute hepatic failure [Recovering/Resolving]
  - Hyperbilirubinaemia [Recovering/Resolving]
  - Decreased appetite [Recovering/Resolving]
  - Encephalopathy [Unknown]
  - Malaise [Recovering/Resolving]
  - Asthenia [Recovering/Resolving]

NARRATIVE: CASE EVENT DATE: 20230822
